FAERS Safety Report 8894193 (Version 1)
Quarter: 2012Q4

REPORT INFORMATION
  Report Type: 
  Country: US (occurrence: US)
  Receive Date: 20121108
  Receipt Date: 20121108
  Transmission Date: 20130627
  Serious: Yes (Hospitalization)
  Sender: FDA-Public Use
  Company Number: US-AMGEN-USASP2012070856

PATIENT
  Age: 66 Year
  Sex: Female

DRUGS (1)
  1. ENBREL [Suspect]
     Indication: RHEUMATOID ARTHRITIS
     Dosage: 25 mg, biweekly
     Dates: start: 20040415, end: 20120902

REACTIONS (5)
  - Fall [Not Recovered/Not Resolved]
  - Joint injury [Recovered/Resolved]
  - Hypotension [Recovered/Resolved]
  - Musculoskeletal pain [Not Recovered/Not Resolved]
  - Anaemia [Not Recovered/Not Resolved]
